FAERS Safety Report 7777597-7 (Version None)
Quarter: 2011Q3

REPORT INFORMATION
  Report Type: 
  Country: None (occurrence: None)
  Receive Date: 20110926
  Receipt Date: 20110913
  Transmission Date: 20111222
  Serious: Yes (Hospitalization, Other)
  Sender: FDA-Public Use
  Company Number: AU-CELGENEUS-008-21660-11092252

PATIENT

DRUGS (11)
  1. ABRAXANE [Suspect]
     Dosage: 220 MILLIGRAM/SQ. METER
     Route: 065
  2. LAPATINIB [Concomitant]
     Route: 065
  3. VINORELBINE [Concomitant]
     Dosage: 3.5714 MILLIGRAM/SQ. METER
     Route: 065
  4. ABRAXANE [Suspect]
     Indication: BREAST CANCER
     Dosage: 175 MILLIGRAM/SQ. METER
     Route: 065
  5. TRASTUZUMAB [Concomitant]
     Route: 065
  6. GEMCITABINE [Concomitant]
     Dosage: 2000 MILLIGRAM/SQ. METER
     Route: 065
  7. EPIRUBICIN [Concomitant]
     Indication: BREAST CANCER
     Dosage: 50 MILLIGRAM/SQ. METER
     Route: 065
  8. BEVACIZUMAB [Concomitant]
     Route: 065
  9. CAPECITABINE [Concomitant]
     Route: 065
  10. CARBOPLATIN [Concomitant]
     Route: 065
  11. GEMCITABINE [Concomitant]
     Indication: BREAST CANCER
     Dosage: 2000 MILLIGRAM/SQ. METER
     Route: 065

REACTIONS (31)
  - ANAEMIA [None]
  - DIARRHOEA [None]
  - PROTEINURIA [None]
  - ALOPECIA [None]
  - HEPATIC ENZYME INCREASED [None]
  - NAUSEA [None]
  - HYPERGLYCAEMIA [None]
  - SYNCOPE [None]
  - CELLULITIS [None]
  - NEUROPATHY PERIPHERAL [None]
  - NAIL DISORDER [None]
  - FEBRILE NEUTROPENIA [None]
  - PALMAR-PLANTAR ERYTHRODYSAESTHESIA SYNDROME [None]
  - MUCOSAL INFLAMMATION [None]
  - VOMITING [None]
  - HYPOGLYCAEMIA [None]
  - LEUKOPENIA [None]
  - PERIPHERAL SENSORY NEUROPATHY [None]
  - FATIGUE [None]
  - ARTHRALGIA [None]
  - RASH [None]
  - THROMBOCYTOPENIA [None]
  - HYPERTENSION [None]
  - BONE PAIN [None]
  - PAIN [None]
  - EMBOLISM VENOUS [None]
  - NEUTROPENIA [None]
  - DEVICE RELATED INFECTION [None]
  - PRURITUS [None]
  - EJECTION FRACTION DECREASED [None]
  - DERMATITIS ACNEIFORM [None]
